FAERS Safety Report 5041496-4 (Version None)
Quarter: 2006Q2

REPORT INFORMATION
  Report Type: 
  Country: None (occurrence: None)
  Receive Date: 20060628
  Receipt Date: 20060620
  Transmission Date: 20061013
  Serious: Yes (Death, Hospitalization)
  Sender: FDA-Public Use
  Company Number: 163-21880-06040356

PATIENT
  Age: 77 Year
  Sex: Male

DRUGS (9)
  1. REVLIMID [Suspect]
     Indication: MYELODYSPLASTIC SYNDROME
     Dosage: 10 MG, DAILY, ORAL
     Route: 048
     Dates: start: 20060312, end: 20060322
  2. EXJADE (DEFERASIROX) [Concomitant]
  3. LASIX [Concomitant]
  4. INSULIN [Concomitant]
  5. ISOSORBIDE (ISOSORBIDE) [Concomitant]
  6. SOTALOL (SOTALOL) [Concomitant]
  7. LISINOPRIL [Concomitant]
  8. SIMVASTATIN [Concomitant]
  9. FOSAMAX [Concomitant]

REACTIONS (7)
  - BACK PAIN [None]
  - BONE MARROW FAILURE [None]
  - CARDIAC DISORDER [None]
  - EAR DISORDER [None]
  - MASTOIDITIS [None]
  - PANCYTOPENIA [None]
  - SEPSIS [None]
